FAERS Safety Report 22155837 (Version 1)
Quarter: 2023Q1

REPORT INFORMATION
  Report Type: Spontaneous
  Country: US (occurrence: US)
  Receive Date: 20230330
  Receipt Date: 20230330
  Transmission Date: 20230418
  Serious: Yes (Life-Threatening, Other)
  Sender: FDA-Public Use
  Company Number: US-PFIZER INC-PV202300057457

PATIENT
  Age: 35 Year
  Sex: Male

DRUGS (5)
  1. AMPICILLIN SODIUM [Suspect]
     Active Substance: AMPICILLIN SODIUM
     Indication: Pharyngitis streptococcal
     Dosage: UNK
  2. CLINDAMYCIN [Suspect]
     Active Substance: CLINDAMYCIN
     Indication: Streptococcal infection
     Dosage: UNK
  3. CLINDAMYCIN [Suspect]
     Active Substance: CLINDAMYCIN
     Indication: Infection
  4. PENICILLIN G [Suspect]
     Active Substance: PENICILLIN G
     Indication: Streptococcal infection
     Dosage: UNK
  5. PENICILLIN G [Suspect]
     Active Substance: PENICILLIN G
     Indication: Infection

REACTIONS (1)
  - Drug ineffective [Recovering/Resolving]
